FAERS Safety Report 4452823-0 (Version None)
Quarter: 2004Q3

REPORT INFORMATION
  Report Type: 
  Country: None (occurrence: None)
  Receive Date: 20040916
  Receipt Date: 20040914
  Transmission Date: 20050211
  Serious: Yes (Hospitalization)
  Sender: FDA-Public Use
  Company Number: THQ2004A00833

PATIENT
  Age: 42 Year
  Sex: Female

DRUGS (2)
  1. PROSTAP SR (LEUPROLIDE ACETATE) [Suspect]
     Dosage: 2 DOSES
     Dates: start: 20040101
  2. CONTRACEPTIVE COIL (INTRAUTERINE CONTRACEPTIVE DEVICE) [Concomitant]

REACTIONS (3)
  - INTRACRANIAL PRESSURE INCREASED [None]
  - OPTIC NERVE INJURY [None]
  - VISUAL ACUITY REDUCED [None]
